FAERS Safety Report 22120534 (Version 4)
Quarter: 2024Q1

REPORT INFORMATION
  Report Type: Other
  Country: US (occurrence: None)
  Receive Date: 20230321
  Receipt Date: 20240326
  Transmission Date: 20240410
  Serious: Yes (Other)
  Sender: FDA-Public Use
  Company Number: US-ROCHE-3308164

PATIENT
  Age: 57 Year
  Sex: Female
  Weight: 528.46 kg

DRUGS (11)
  1. OCREVUS [Suspect]
     Active Substance: OCRELIZUMAB
     Indication: Relapsing multiple sclerosis
     Dosage: 600 MG EVERY 6 MONTHS ?STRENGTH: 30 MG/ML; DATE OF TREATMENT: 04/FEB/2020, 14/SEP/2020, 21/JAN/2020,
     Route: 042
  2. RITUXAN [Suspect]
     Active Substance: RITUXIMAB
     Indication: Multiple sclerosis
     Dosage: STRENGTH: 10MG/ML
     Route: 042
  3. DONEPEZIL [Concomitant]
     Active Substance: DONEPEZIL
     Route: 048
  4. CYMBALTA [Concomitant]
     Active Substance: DULOXETINE HYDROCHLORIDE
     Route: 048
  5. CYMBALTA [Concomitant]
     Active Substance: DULOXETINE HYDROCHLORIDE
     Route: 048
  6. PREGABALIN [Concomitant]
     Active Substance: PREGABALIN
     Route: 048
  7. AMANTADINE HYDROCHLORIDE [Concomitant]
     Active Substance: AMANTADINE HYDROCHLORIDE
     Route: 048
  8. CARDIZEM [Concomitant]
     Active Substance: DILTIAZEM HYDROCHLORIDE
     Route: 048
  9. TRILEPTAL [Concomitant]
     Active Substance: OXCARBAZEPINE
     Route: 048
  10. BACLOFEN [Concomitant]
     Active Substance: BACLOFEN
     Route: 048
  11. PROAIR HFA [Concomitant]
     Active Substance: ALBUTEROL SULFATE
     Dosage: 2 PUFFS

REACTIONS (36)
  - Myelopathy [Unknown]
  - Demyelination [Unknown]
  - Ataxia [Unknown]
  - Facial pain [Unknown]
  - Fatigue [Unknown]
  - Vitamin D deficiency [Unknown]
  - Memory impairment [Unknown]
  - Neuralgia [Unknown]
  - Spinal osteoarthritis [Unknown]
  - Hyperreflexia [Unknown]
  - Hypoaesthesia [Unknown]
  - Off label use [Unknown]
  - Weight abnormal [Unknown]
  - Rash [Unknown]
  - Pruritus [Unknown]
  - Vision blurred [Unknown]
  - Sinus disorder [Unknown]
  - Peripheral swelling [Unknown]
  - Dyspnoea [Unknown]
  - Constipation [Unknown]
  - Pollakiuria [Unknown]
  - Incontinence [Unknown]
  - Dyspareunia [Unknown]
  - Arthralgia [Unknown]
  - Muscular weakness [Unknown]
  - Back pain [Unknown]
  - Muscle spasms [Unknown]
  - Peripheral coldness [Unknown]
  - Gait disturbance [Unknown]
  - Dizziness [Unknown]
  - Hypoaesthesia [Unknown]
  - Tremor [Unknown]
  - Dry skin [Unknown]
  - Temperature intolerance [Unknown]
  - Diplopia [Unknown]
  - Joint swelling [Unknown]
